FAERS Safety Report 9746417 (Version 2)
Quarter: 2013Q4

REPORT INFORMATION
  Report Type: Spontaneous
  Country: JP (occurrence: JP)
  Receive Date: 20131211
  Receipt Date: 20131217
  Transmission Date: 20140711
  Serious: Yes (Hospitalization)
  Sender: FDA-Public Use
  Company Number: JP-GLAXOSMITHKLINE-B0951243A

PATIENT
  Age: 91 Year
  Sex: Male
  Weight: 47 kg

DRUGS (6)
  1. VALTREX [Suspect]
     Indication: HERPES ZOSTER
     Dosage: 1000MG THREE TIMES PER DAY
     Route: 048
     Dates: start: 20131118, end: 20131122
  2. MEVALOTIN [Concomitant]
     Indication: HYPERLIPIDAEMIA
     Dosage: 10MG PER DAY
     Route: 048
     Dates: end: 20131122
  3. HARNAL [Concomitant]
     Dosage: .2MG PER DAY
     Route: 048
     Dates: end: 20131122
  4. GASTER [Concomitant]
     Indication: GASTRITIS
     Dosage: 20MG PER DAY
     Route: 065
     Dates: end: 20131122
  5. NORVASC [Concomitant]
     Indication: HYPERTENSION
     Dosage: 2.5MG PER DAY
     Route: 048
     Dates: end: 20131122
  6. METGLUCO [Concomitant]
     Indication: DIABETES MELLITUS
     Dosage: 500MG TWICE PER DAY
     Route: 048

REACTIONS (2)
  - Renal impairment [Recovering/Resolving]
  - Altered state of consciousness [Recovering/Resolving]
